FAERS Safety Report 7244296-X (Version None)
Quarter: 2011Q1

REPORT INFORMATION
  Report Type: 
  Country: None (occurrence: None)
  Receive Date: 20110125
  Receipt Date: 20110120
  Transmission Date: 20110831
  Serious: Yes (Other)
  Sender: FDA-Public Use
  Company Number: US-AMGEN-USASP2011003980

PATIENT
  Age: 81 Year
  Sex: Male
  Weight: 75.737 kg

DRUGS (8)
  1. METOPROLOL [Concomitant]
  2. NPLATE [Suspect]
     Indication: IDIOPATHIC THROMBOCYTOPENIC PURPURA
     Dosage: 250 A?G, UNK
     Dates: end: 20100222
  3. PROSCAR [Concomitant]
  4. OMEPRAZOLE [Concomitant]
  5. SIMVASTATIN [Concomitant]
  6. TERAZOSIN HCL [Concomitant]
  7. ASPIRIN [Concomitant]
  8. CORTICOSTEROIDS [Concomitant]
     Dosage: UNK
     Dates: start: 20100119

REACTIONS (2)
  - POST PROCEDURAL INFECTION [None]
  - SEROMA [None]
